FAERS Safety Report 9214498 (Version 1)
Quarter: 2013Q2

REPORT INFORMATION
  Report Type: Report from Study
  Country: US (occurrence: US)
  Receive Date: 20130405
  Receipt Date: 20130405
  Transmission Date: 20140414
  Serious: Yes (Other)
  Sender: FDA-Public Use
  Company Number: US-ABBOTT-13P-163-1070548-00

PATIENT
  Age: 31 Year
  Sex: Female

DRUGS (1)
  1. HUMIRA [Suspect]
     Indication: CROHN^S DISEASE
     Dates: start: 20121009, end: 20130116

REACTIONS (6)
  - Lower respiratory tract inflammation [Recovering/Resolving]
  - Oxygen saturation decreased [Recovering/Resolving]
  - Hypersensitivity [Recovering/Resolving]
  - Hypoventilation [Recovering/Resolving]
  - Chest discomfort [Recovering/Resolving]
  - Dyspepsia [Recovering/Resolving]
